FAERS Safety Report 7606266-9 (Version None)
Quarter: 2011Q3

REPORT INFORMATION
  Report Type: 
  Country: None (occurrence: None)
  Receive Date: 20110713
  Receipt Date: 20110706
  Transmission Date: 20111222
  Serious: Yes (Other)
  Sender: FDA-Public Use
  Company Number: US-BAYER-2011-043275

PATIENT
  Age: 25 Year
  Sex: Female
  Weight: 96.145 kg

DRUGS (1)
  1. MIRENA [Suspect]
     Indication: CONTRACEPTION
     Dosage: 20 MCG/24HR, CONT
     Route: 015
     Dates: start: 20100607, end: 20110512

REACTIONS (4)
  - ECTOPIC PREGNANCY [None]
  - METRORRHAGIA [None]
  - PAIN [None]
  - ABDOMINAL PAIN [None]
